FAERS Safety Report 15540121 (Version 1)
Quarter: 2018Q4

REPORT INFORMATION
  Report Type: Spontaneous
  Country: FR (occurrence: FR)
  Receive Date: 20181023
  Receipt Date: 20181023
  Transmission Date: 20190205
  Serious: Yes (Hospitalization)
  Sender: FDA-Public Use
  Company Number: FR-SUN PHARMACEUTICAL INDUSTRIES LTD-2018RR-188719

PATIENT
  Age: 21 Year
  Sex: Female
  Weight: 52 kg

DRUGS (3)
  1. LAMALINE (ACETAMINOPHEN\CAFFEINE\OPIUM) [Suspect]
     Active Substance: ACETAMINOPHEN\CAFFEINE\OPIUM
     Indication: TOXICITY TO VARIOUS AGENTS
     Route: 054
     Dates: start: 20180916, end: 20180916
  2. BREXIN 20 MG, COMPRIME SECABLE [Suspect]
     Active Substance: PIROXICAM BETADEX
     Indication: TOXICITY TO VARIOUS AGENTS
     Route: 048
     Dates: start: 20180916, end: 20180916
  3. PARACETAMOL [Suspect]
     Active Substance: ACETAMINOPHEN
     Indication: TOXICITY TO VARIOUS AGENTS
     Dosage: 10 CP DE 1 G
     Route: 048
     Dates: start: 20180916, end: 20180916

REACTIONS (3)
  - Abdominal pain [Recovered/Resolved]
  - Toxicity to various agents [Recovered/Resolved]
  - Vomiting [Recovered/Resolved]

NARRATIVE: CASE EVENT DATE: 20180916
